FAERS Safety Report 13794226 (Version 5)
Quarter: 2017Q4

REPORT INFORMATION
  Report Type: Spontaneous
  Country: US (occurrence: US)
  Receive Date: 20170726
  Receipt Date: 20171214
  Transmission Date: 20180320
  Serious: Yes (Hospitalization)
  Sender: FDA-Public Use
  Company Number: US-PFIZER INC-2017229845

PATIENT
  Age: 52 Year
  Sex: Female

DRUGS (1)
  1. XELJANZ XR [Suspect]
     Active Substance: TOFACITINIB CITRATE
     Dosage: 11 MG, DAILY
     Dates: start: 201705

REACTIONS (11)
  - Fatigue [Unknown]
  - Chest pain [Recovered/Resolved]
  - Drug ineffective [Unknown]
  - Cardiac disorder [Unknown]
  - Eye infection [Unknown]
  - Back pain [Unknown]
  - Arterial disorder [Unknown]
  - Headache [Unknown]
  - Rhinorrhoea [Unknown]
  - Memory impairment [Unknown]
  - Arthralgia [Unknown]

NARRATIVE: CASE EVENT DATE: 20171012
